FAERS Safety Report 14624509 (Version 1)
Quarter: 2018Q1

REPORT INFORMATION
  Report Type: Spontaneous
  Country: US (occurrence: US)
  Receive Date: 20180310
  Receipt Date: 20180310
  Transmission Date: 20180509
  Serious: Yes (Other)
  Sender: FDA-Public Use
  Company Number: None

PATIENT
  Age: 50 Year
  Sex: Male
  Weight: 83.25 kg

DRUGS (4)
  1. TERAZOSIN 5MG [Concomitant]
  2. TERBINAFINE. [Suspect]
     Active Substance: TERBINAFINE
     Indication: ONYCHOMYCOSIS
     Route: 048
  3. ELIQUIS [Suspect]
     Active Substance: APIXABAN
     Indication: COAGULOPATHY
     Route: 048
  4. LISINOPRIL 10MG [Concomitant]
     Active Substance: LISINOPRIL

REACTIONS (4)
  - Therapy change [None]
  - Thrombosis [None]
  - Arthralgia [None]
  - Paronychia [None]

NARRATIVE: CASE EVENT DATE: 20180306
